FAERS Safety Report 11248630 (Version 1)
Quarter: 2015Q3

REPORT INFORMATION
  Report Type: Spontaneous
  Country: US (occurrence: US)
  Receive Date: 20150708
  Receipt Date: 20150708
  Transmission Date: 20151125
  Serious: Yes (Other)
  Sender: FDA-Public Use
  Company Number: US-CIPLA LTD.-2015US05427

PATIENT

DRUGS (2)
  1. GEMCITABINE [Suspect]
     Active Substance: GEMCITABINE\GEMCITABINE HYDROCHLORIDE
     Indication: NEOPLASM
     Dosage: 600 MG/M2 ON DAYS 1, 8, 15, AND 22 (CYCLE 1), DAYS 1, 8, AND 15 (SUBSEQUENT CYCLES)
     Route: 042
  2. OLAPARIB [Suspect]
     Active Substance: OLAPARIB
     Indication: NEOPLASM
     Dosage: 100 MG B.I.D. ORALLY, ON DAYS 1-28 (INTERMITTENT COHORT DAYS 1-14) PER CYCLE
     Route: 048

REACTIONS (1)
  - Abdominal pain [Unknown]
